FAERS Safety Report 9465053 (Version 2)
Quarter: 2013Q4

REPORT INFORMATION
  Report Type: Spontaneous
  Country: US (occurrence: US)
  Receive Date: 20130819
  Receipt Date: 20131002
  Transmission Date: 20140711
  Serious: Yes (Other)
  Sender: FDA-Public Use
  Company Number: US-TEVA-426387USA

PATIENT
  Sex: Female

DRUGS (6)
  1. COPAXONE [Suspect]
     Indication: MULTIPLE SCLEROSIS
     Dosage: 20 MG/ML DAILY;
  2. ALENDRONATE SODIUM [Concomitant]
     Dosage: 10 MILLIGRAM DAILY;
  3. AMANTADINE [Concomitant]
     Dosage: 300 MILLIGRAM DAILY;
  4. BACLOFEN [Concomitant]
     Dosage: 60 MILLIGRAM DAILY;
  5. CITALOPRAM [Concomitant]
     Dosage: 30 MILLIGRAM DAILY;
  6. VITAMIN D NOS [Concomitant]
     Dosage: 5000 IU (INTERNATIONAL UNIT) DAILY;

REACTIONS (2)
  - Mycobacterium avium complex infection [Not Recovered/Not Resolved]
  - Gastrointestinal stromal tumour [Not Recovered/Not Resolved]
